FAERS Safety Report 16796778 (Version 3)
Quarter: 2020Q2

REPORT INFORMATION
  Report Type: Report from Study
  Country: CA (occurrence: CA)
  Receive Date: 20190911
  Receipt Date: 20200409
  Transmission Date: 20200713
  Serious: Yes (Other)
  Sender: FDA-Public Use
  Company Number: CA-OTSUKA-2017_016800

PATIENT
  Age: 37 Year
  Sex: Female

DRUGS (8)
  1. CLONAZEPAM. [Suspect]
     Active Substance: CLONAZEPAM
     Dosage: 0.5 MG, QD (PM)
     Route: 048
  2. CLONAZEPAM. [Suspect]
     Active Substance: CLONAZEPAM
     Indication: PRODUCT USED FOR UNKNOWN INDICATION
     Dosage: 0.25 MG, QD (AM)
     Route: 048
  3. ARIPIPRAZOLE. [Suspect]
     Active Substance: ARIPIPRAZOLE
     Indication: SCHIZOPHRENIA
     Dosage: 300 MG, EVERY 4 WEEKS
     Route: 030
     Dates: start: 20170529
  4. ARIPIPRAZOLE. [Suspect]
     Active Substance: ARIPIPRAZOLE
     Dosage: 300 MG, Q5 WEEKS
     Route: 042
     Dates: start: 20190919
  5. CLONAZEPAM. [Suspect]
     Active Substance: CLONAZEPAM
     Dosage: 300 MG, EVERY 4 WEEKS
     Route: 065
  6. ARIPIPRAZOLE. [Suspect]
     Active Substance: ARIPIPRAZOLE
     Dosage: 400 MG, QM
     Route: 065
  7. ARIPIPRAZOLE. [Suspect]
     Active Substance: ARIPIPRAZOLE
     Dosage: 300 MG, Q5 WEEKS
     Route: 030
  8. CLONAZEPAM. [Suspect]
     Active Substance: CLONAZEPAM
     Dosage: 0.25 MG, BID
     Route: 065

REACTIONS (22)
  - Blood pressure diastolic increased [Not Recovered/Not Resolved]
  - Road traffic accident [Unknown]
  - Cystitis [Recovered/Resolved]
  - Lethargy [Recovering/Resolving]
  - Intervertebral disc protrusion [Unknown]
  - Balance disorder [Unknown]
  - Back pain [Unknown]
  - Asthenia [Unknown]
  - Incorrect route of product administration [Unknown]
  - Nasopharyngitis [Unknown]
  - Loss of personal independence in daily activities [Unknown]
  - Mental disorder [Unknown]
  - Nervousness [Unknown]
  - Malaise [Unknown]
  - Anxiety [Unknown]
  - Inappropriate schedule of product administration [Unknown]
  - Blood pressure increased [Unknown]
  - Chest pain [Unknown]
  - Cast application [Unknown]
  - Peripheral swelling [Not Recovered/Not Resolved]
  - Underdose [Unknown]
  - Thrombosis [Not Recovered/Not Resolved]

NARRATIVE: CASE EVENT DATE: 20170529
